FAERS Safety Report 25389123 (Version 1)
Quarter: 2025Q2

REPORT INFORMATION
  Report Type: Spontaneous
  Country: US (occurrence: US)
  Receive Date: 20250603
  Receipt Date: 20250603
  Transmission Date: 20250716
  Serious: No
  Sender: BIONPHARMA INC.
  Company Number: US-Bion-014996

PATIENT
  Age: 74 Year
  Sex: Female

DRUGS (2)
  1. NAPROXEN SODIUM [Suspect]
     Active Substance: NAPROXEN SODIUM
     Indication: Inflammation
     Route: 048
     Dates: start: 20250522, end: 20250523
  2. HYDROCODONE [Concomitant]
     Active Substance: HYDROCODONE
     Indication: Inflammation

REACTIONS (1)
  - Expired product administered [Unknown]
